FAERS Safety Report 5246764-9 (Version None)
Quarter: 2007Q1

REPORT INFORMATION
  Report Type: 
  Country: None (occurrence: None)
  Receive Date: 20070226
  Receipt Date: 20070222
  Transmission Date: 20070707
  Serious: Yes (Death)
  Sender: FDA-Public Use
  Company Number: 2007AP00757

PATIENT
  Age: 31332 Day
  Sex: Female

DRUGS (9)
  1. IRESSA [Suspect]
     Indication: NON-SMALL CELL LUNG CANCER
     Route: 048
     Dates: start: 20061129, end: 20070130
  2. ASPARA-CA [Concomitant]
     Indication: OSTEOPOROSIS
     Route: 048
     Dates: start: 20061101, end: 20070130
  3. GASTER [Concomitant]
     Indication: GASTRITIS
     Route: 048
     Dates: start: 20040414, end: 20070130
  4. FK [Concomitant]
     Indication: GASTRITIS
     Route: 048
     Dates: start: 20050119, end: 20070130
  5. MUCOSOLVAN [Concomitant]
     Indication: EMPHYSEMA
     Route: 048
     Dates: start: 20060903, end: 20070130
  6. RINLAXER [Concomitant]
     Indication: OSTEOPOROSIS
     Route: 048
     Dates: start: 20060901, end: 20070130
  7. MAGNESIUM OXIDE [Concomitant]
     Indication: CONSTIPATION
     Route: 048
     Dates: start: 20060901, end: 20070130
  8. ASPARA K [Concomitant]
     Indication: HYPOKALAEMIA
     Route: 048
     Dates: start: 20061101, end: 20070130
  9. ALOSENN [Concomitant]
     Indication: CONSTIPATION
     Route: 048
     Dates: start: 20061101, end: 20070130

REACTIONS (1)
  - HEPATIC FUNCTION ABNORMAL [None]
